FAERS Safety Report 10204675 (Version 2)
Quarter: 2014Q3

REPORT INFORMATION
  Report Type: Spontaneous
  Country: US (occurrence: US)
  Receive Date: 20140529
  Receipt Date: 20140717
  Transmission Date: 20150326
  Serious: Yes (Other)
  Sender: FDA-Public Use
  Company Number: US-GLAXOSMITHKLINE-A1074356A

PATIENT
  Age: 84 Year
  Sex: Male

DRUGS (22)
  1. BREO ELLIPTA [Suspect]
     Active Substance: FLUTICASONE FUROATE\VILANTEROL TRIFENATATE
     Indication: CHRONIC OBSTRUCTIVE PULMONARY DISEASE
     Dosage: 1PUFF PER DAY
     Route: 055
     Dates: start: 20140408, end: 201405
  2. GLIPIZIDE. [Concomitant]
     Active Substance: GLIPIZIDE
  3. N-ACETYLCYSTEINE [Concomitant]
     Active Substance: ACETYLCYSTEINE
  4. PHAZYME [Concomitant]
     Active Substance: DIMETHICONE 410
  5. POTASSIUM CHLORIDE. [Concomitant]
     Active Substance: POTASSIUM CHLORIDE
  6. PREDNISONE. [Concomitant]
     Active Substance: PREDNISONE
  7. CINNAMON. [Concomitant]
     Active Substance: CINNAMON
  8. FISH OIL [Concomitant]
     Active Substance: FISH OIL
  9. ALIGN [Concomitant]
     Active Substance: BIFIDOBACTERIUM LONGUM SUBSP. INFANTIS
  10. CLOPIDOGREL BISULFATE. [Concomitant]
     Active Substance: CLOPIDOGREL BISULFATE
  11. ALBUTEROL + IPRATROPIUM BROMIDE [Concomitant]
     Active Substance: ALBUTEROL\IPRATROPIUM BROMIDE
  12. LOSARTAN POTASSIUM. [Concomitant]
     Active Substance: LOSARTAN POTASSIUM
  13. MUCINEX [Concomitant]
     Active Substance: GUAIFENESIN
  14. SIMVASTATIN. [Concomitant]
     Active Substance: SIMVASTATIN
  15. FOLPLEX [Concomitant]
     Active Substance: CHOLECALCIFEROL\CYANOCOBALAMIN CO-57\FOLIC ACID\PYRIDOXINE HYDROCHLORIDE
  16. LASIX [Concomitant]
     Active Substance: FUROSEMIDE
  17. PANTOPRAZOLE SODIUM. [Concomitant]
     Active Substance: PANTOPRAZOLE SODIUM
  18. AMOXICILLIN. [Concomitant]
     Active Substance: AMOXICILLIN
  19. CLARITIN [Concomitant]
     Active Substance: LORATADINE
  20. DUONEB [Concomitant]
     Active Substance: ALBUTEROL SULFATE\IPRATROPIUM BROMIDE
  21. OXYGEN. [Concomitant]
     Active Substance: OXYGEN
  22. SALINE [Concomitant]
     Active Substance: SODIUM CHLORIDE

REACTIONS (8)
  - Hypoxia [Recovering/Resolving]
  - Respiratory disorder [Recovering/Resolving]
  - Asthenia [Recovering/Resolving]
  - Labelled drug-disease interaction medication error [Unknown]
  - Dyspnoea [Recovering/Resolving]
  - Sputum increased [Recovering/Resolving]
  - Drug hypersensitivity [Recovering/Resolving]
  - Product quality issue [Unknown]

NARRATIVE: CASE EVENT DATE: 201404
